FAERS Safety Report 9690200 (Version 1)
Quarter: 2013Q4

REPORT INFORMATION
  Report Type: Spontaneous
  Country: US (occurrence: None)
  Receive Date: 20131114
  Receipt Date: 20131114
  Transmission Date: 20140711
  Serious: No
  Sender: FDA-Public Use
  Company Number: None

PATIENT
  Age: 31 Year
  Sex: Male
  Weight: 82.56 kg

DRUGS (2)
  1. METHYLPHENIDATE (CONCERTA GENERIC) [Suspect]
     Indication: ATTENTION DEFICIT/HYPERACTIVITY DISORDER
     Dosage: 90 ONCE DAILY TAKEN BY MOUTH
     Route: 048
     Dates: start: 20131101, end: 20131108
  2. CONCERTA [Concomitant]

REACTIONS (3)
  - Product substitution issue [None]
  - Product quality issue [None]
  - Disturbance in attention [None]
